FAERS Safety Report 6724845-8 (Version None)
Quarter: 2010Q2

REPORT INFORMATION
  Report Type: 
  Country: None (occurrence: None)
  Receive Date: 20100513
  Receipt Date: 20100513
  Transmission Date: 20101027
  Serious: Yes (Other)
  Sender: FDA-Public Use
  Company Number: None

PATIENT
  Sex: Female
  Weight: 96.6162 kg

DRUGS (1)
  1. LANSOPRAZOLE [Suspect]
     Dosage: 40 MG QD PO
     Route: 048
     Dates: start: 20091208, end: 20091218

REACTIONS (3)
  - DRY MOUTH [None]
  - NAUSEA [None]
  - PRODUCT SUBSTITUTION ISSUE [None]
